FAERS Safety Report 8266703-6 (Version None)
Quarter: 2012Q2

REPORT INFORMATION
  Report Type: 
  Country: None (occurrence: None)
  Receive Date: 20120409
  Receipt Date: 20120329
  Transmission Date: 20120825
  Serious: Yes (Other)
  Sender: FDA-Public Use
  Company Number: BR-BRISTOL-MYERS SQUIBB COMPANY-16492407

PATIENT
  Age: 84 Year
  Sex: Female
  Weight: 72 kg

DRUGS (18)
  1. CIPROL [Concomitant]
     Indication: PARKINSON'S DISEASE
     Route: 048
     Dates: start: 20040101
  2. FLUOXETINE [Concomitant]
     Indication: DEPRESSION
     Dosage: AFTER LUNCH
     Dates: start: 20110101
  3. HUMULIN N [Concomitant]
     Indication: DIABETES MELLITUS
     Dosage: 1DF=20UI IN THE MORN
     Route: 042
     Dates: start: 20020101
  4. SYMBICORT [Concomitant]
     Indication: ASTHMA
     Dates: start: 20080101
  5. SPIRONOLACTONE [Concomitant]
     Indication: HYPERTENSION
     Dosage: 1DF=HALF TAB
     Route: 048
     Dates: start: 20090101
  6. LEVOTHYROXINE SODIUM [Concomitant]
     Indication: THYROID DISORDER
     Dates: start: 20070101
  7. ACETAMINOPHEN [Concomitant]
     Indication: BONE PAIN
     Dosage: PT TAKES 1TAB PER DY
     Route: 048
     Dates: start: 20090101
  8. SIMVASTATIN [Concomitant]
     Indication: BLOOD CHOLESTEROL INCREASED
     Dosage: HALF TAB PER DY
     Route: 048
     Dates: start: 20100101
  9. IRBESARTAN [Suspect]
     Indication: CARDIAC DISORDER
     Dosage: 1DF=HALF TAB AFTER BREAKFAST
     Route: 048
     Dates: start: 20080101
  10. AZOPT [Concomitant]
     Indication: OCULAR HYPERTENSION
     Dosage: 1DF=1 DROP IN EACH EYE
     Dates: start: 20070101
  11. TAMARINE [Concomitant]
     Indication: CONSTIPATION
     Dosage: AFTER DINNER
     Route: 048
     Dates: start: 20100101
  12. TRAVATAN [Concomitant]
     Indication: GLAUCOMA
     Dosage: 1DROP IN EACH EYE
     Dates: start: 20080101
  13. ASPIRIN [Concomitant]
     Indication: COAGULOPATHY
     Dosage: AFET LUNCH
     Route: 048
     Dates: start: 20020101
  14. DILTIAZEM HCL [Concomitant]
     Indication: HYPERTENSION
     Route: 048
     Dates: start: 20080101
  15. SPIRONOLACTONE [Concomitant]
     Indication: CARDIAC DISORDER
     Dosage: 1DF=HALF TAB
     Route: 048
     Dates: start: 20090101
  16. FUROSEMIDE [Concomitant]
     Route: 048
     Dates: start: 19970101
  17. DOMPERIDONE [Concomitant]
     Route: 048
     Dates: start: 20110101
  18. OMEPRAZOLE [Concomitant]
     Indication: GASTRITIS
     Route: 048

REACTIONS (2)
  - DEMENTIA ALZHEIMER'S TYPE [None]
  - CEREBROVASCULAR ACCIDENT [None]
